FAERS Safety Report 17566783 (Version 2)
Quarter: 2020Q2

REPORT INFORMATION
  Report Type: Spontaneous
  Country: SG (occurrence: SG)
  Receive Date: 20200320
  Receipt Date: 20200511
  Transmission Date: 20200713
  Serious: Yes (Other)
  Sender: FDA-Public Use
  Company Number: SG-JNJFOC-20200322781

PATIENT
  Age: 86 Year
  Sex: Male
  Weight: 62.5 kg

DRUGS (13)
  1. RIVAROXABAN [Interacting]
     Active Substance: RIVAROXABAN
     Indication: ISCHAEMIC STROKE
  2. GLICLAZIDE MR STADA [Concomitant]
     Dosage: 60 MG, OM
  3. SALBUTAMOL [Concomitant]
     Active Substance: ALBUTEROL
     Dosage: 1 ML, PRN
  4. SALBUTAMOL [Concomitant]
     Active Substance: ALBUTEROL
     Dosage: 2 DF, 6ID
  5. DIGOXIN. [Concomitant]
     Active Substance: DIGOXIN
     Dosage: 62.5 UG, OM
  6. CHOLECALCIFEROL [Concomitant]
     Active Substance: CHOLECALCIFEROL
     Dosage: 1000 U, OM
  7. AMIODARONE [Interacting]
     Active Substance: AMIODARONE
     Indication: ATRIAL FLUTTER
     Dosage: 200 MG, OM
     Route: 065
     Dates: start: 20181226
  8. RIVAROXABAN [Suspect]
     Active Substance: RIVAROXABAN
     Indication: ATRIAL FLUTTER
     Dosage: 10 MG, OM
     Route: 048
     Dates: start: 20190417, end: 20190717
  9. OMEPRAZOLE. [Concomitant]
     Active Substance: OMEPRAZOLE
     Dosage: 20 MG, OM
  10. IPRATROPIUM [Concomitant]
     Active Substance: IPRATROPIUM
  11. FUROSEMIDE. [Concomitant]
     Active Substance: FUROSEMIDE
     Dosage: 20 MG, OM
  12. SPIRONOLACTONE. [Concomitant]
     Active Substance: SPIRONOLACTONE
     Dosage: 12.5 MG, OM
  13. IPRATROPIUM BROMIDE. [Concomitant]
     Active Substance: IPRATROPIUM BROMIDE
     Dosage: UNK, PRN

REACTIONS (5)
  - Off label use [Unknown]
  - Drug interaction [Unknown]
  - Incorrect dose administered [Unknown]
  - Pemphigoid [Recovered/Resolved]
  - Type IV hypersensitivity reaction [Recovering/Resolving]

NARRATIVE: CASE EVENT DATE: 201904
